FAERS Safety Report 24929951 (Version 8)
Quarter: 2025Q2

REPORT INFORMATION
  Report Type: Report from Study
  Country: ES (occurrence: ES)
  Receive Date: 20250205
  Receipt Date: 20250630
  Transmission Date: 20250716
  Serious: Yes (Life-Threatening, Other)
  Sender: JOHNSON AND JOHNSON
  Company Number: ES-JNJFOC-20250180875

PATIENT
  Age: 67 Year
  Sex: Male

DRUGS (3)
  1. TALQUETAMAB [Suspect]
     Active Substance: TALQUETAMAB
     Indication: Plasma cell myeloma
     Route: 065
     Dates: start: 20231218
  2. TALQUETAMAB [Suspect]
     Active Substance: TALQUETAMAB
     Dates: start: 20231218
  3. TALQUETAMAB [Suspect]
     Active Substance: TALQUETAMAB
     Route: 065
     Dates: start: 20231218, end: 20231220

REACTIONS (4)
  - Acute kidney injury [Not Recovered/Not Resolved]
  - Thrombocytopenia [Not Recovered/Not Resolved]
  - Cytokine release syndrome [Recovered/Resolved]
  - Incorrect dose administered [Unknown]

NARRATIVE: CASE EVENT DATE: 20231218
